FAERS Safety Report 9191540 (Version 2)
Quarter: 2013Q1

REPORT INFORMATION
  Report Type: Spontaneous
  Country: DE (occurrence: CA)
  Receive Date: 20130326
  Receipt Date: 20130328
  Transmission Date: 20140127
  Serious: Yes (Other)
  Sender: FDA-Public Use
  Company Number: CA-FRI-1000043780

PATIENT
  Age: 69 Year
  Sex: Male
  Weight: 85 kg

DRUGS (12)
  1. ROFLUMILAST [Suspect]
     Indication: CHRONIC OBSTRUCTIVE PULMONARY DISEASE
     Dosage: 500 MCG
     Route: 048
  2. ASA [Concomitant]
  3. CLONAZEPAM [Concomitant]
  4. DIABETA [Concomitant]
  5. DIOVANE [Concomitant]
  6. LASIX [Concomitant]
  7. METFORMIN [Concomitant]
  8. NEXIUM [Concomitant]
  9. NORVASC [Concomitant]
  10. ONGLYZA [Concomitant]
  11. SUPEUDOL [Concomitant]
  12. UNIPHYL [Concomitant]

REACTIONS (1)
  - Drug-induced liver injury [Recovered/Resolved]
